FAERS Safety Report 5254316-X (Version None)
Quarter: 2007Q1

REPORT INFORMATION
  Report Type: 
  Country: None (occurrence: None)
  Receive Date: 20070302
  Receipt Date: 20070223
  Transmission Date: 20070707
  Serious: Yes (Hospitalization)
  Sender: FDA-Public Use
  Company Number: 2007PK00517

PATIENT
  Age: 72 Year
  Sex: Male
  Weight: 76 kg

DRUGS (4)
  1. ATACAND [Suspect]
     Indication: CARDIAC FAILURE
     Route: 048
     Dates: start: 20060531
  2. CAPTOPRIL [Concomitant]
  3. CARVEDILOL [Concomitant]
  4. FURORESE [Concomitant]

REACTIONS (1)
  - CARDIAC FAILURE [None]
